FAERS Safety Report 6165327-4 (Version None)
Quarter: 2009Q2

REPORT INFORMATION
  Report Type: 
  Country: None (occurrence: None)
  Receive Date: 20090423
  Receipt Date: 20090414
  Transmission Date: 20091009
  Serious: Yes (Other)
  Sender: FDA-Public Use
  Company Number: GB-VALEANT-2009VX000631

PATIENT
  Sex: Female

DRUGS (2)
  1. VIRAZOLE [Suspect]
     Route: 055
     Dates: start: 20090331
  2. CYCLOSPORINE [Suspect]
     Route: 065

REACTIONS (3)
  - CONVULSION [None]
  - DRUG LEVEL INCREASED [None]
  - FALL [None]
